FAERS Safety Report 5941911-5 (Version None)
Quarter: 2008Q4

REPORT INFORMATION
  Report Type: 
  Country: None (occurrence: None)
  Receive Date: 20081105
  Receipt Date: 20081022
  Transmission Date: 20090506
  Serious: Yes (Life-Threatening, Hospitalization, Disabling)
  Sender: FDA-Public Use
  Company Number: ES-GENENTECH-261811

PATIENT
  Sex: Female
  Weight: 86.5 kg

DRUGS (9)
  1. BEVACIZUMAB [Suspect]
     Indication: RECTAL CANCER
     Dosage: 7.5 MG/KG, Q3W
     Route: 042
     Dates: start: 20071026
  2. BEVACIZUMAB [Suspect]
     Dosage: 5 MG/KG, UNK
     Route: 042
     Dates: end: 20080306
  3. BEVACIZUMAB [Suspect]
     Dosage: 430 MG, Q2W
  4. OXALIPLATIN [Suspect]
     Indication: RECTAL CANCER
     Dosage: 130 MG/M2, Q3W
     Route: 042
     Dates: start: 20071026
  5. CAPECITABINE [Suspect]
     Indication: RECTAL CANCER
     Dosage: 1000 MG/M2, BID
     Route: 048
     Dates: start: 20071026
  6. CAPECITABINE [Suspect]
     Dosage: 825 MG/M2, BID
     Route: 048
     Dates: end: 20080307
  7. CAPECITABINE [Suspect]
     Dosage: 3300 MG, UNK
  8. RADIOTHERAPY [Concomitant]
     Indication: RECTAL CANCER
     Dosage: 1.8 GY, UNK
  9. METFORMIN HCL [Concomitant]
     Indication: DRUG USE FOR UNKNOWN INDICATION

REACTIONS (1)
  - SEPTIC SHOCK [None]
